FAERS Safety Report 21948130 (Version 1)
Quarter: 2023Q1

REPORT INFORMATION
  Report Type: Spontaneous
  Country: US (occurrence: US)
  Receive Date: 20230203
  Receipt Date: 20230203
  Transmission Date: 20230418
  Serious: No
  Sender: FDA-Public Use
  Company Number: US-JNJFOC-20230152452

PATIENT
  Age: 72 Year
  Sex: Male
  Weight: 56.750 kg

DRUGS (2)
  1. STELARA [Suspect]
     Active Substance: USTEKINUMAB
     Indication: Crohn^s disease
     Route: 058
     Dates: start: 2020
  2. STELARA [Suspect]
     Active Substance: USTEKINUMAB

REACTIONS (8)
  - Weight decreased [Unknown]
  - Rash [Unknown]
  - Illness [Unknown]
  - Insomnia [Unknown]
  - Pyrexia [Unknown]
  - Eating disorder [Unknown]
  - Nasal congestion [Unknown]
  - Hypoacusis [Unknown]
